FAERS Safety Report 8834222 (Version 1)
Quarter: 2012Q4

REPORT INFORMATION
  Report Type: Spontaneous
  Country: GB (occurrence: None)
  Receive Date: 20121009
  Receipt Date: 20121009
  Transmission Date: 20130627
  Serious: Yes (Life-Threatening, Hospitalization)
  Sender: FDA-Public Use
  Company Number: AUR-APL-2012-04260

PATIENT
  Age: 26 Year
  Sex: Female

DRUGS (7)
  1. AMOXICILLIN + CLAVULANATE POTASSIUM [Suspect]
     Indication: DRUG USE FOR UNKNOWN INDICATION
     Dates: start: 20120718
  2. GELATIN [Suspect]
     Indication: DRUG USE FOR UNKNOWN INDICATION
     Route: 041
     Dates: start: 20120718
  3. BUPIVACAINE (BUPIVACAINE) [Concomitant]
  4. CHLORPHENAMINE (CHLORPHENAMINE) [Concomitant]
  5. HYDROCORTISONE SODIUM SUCCINATE (HYDROCORTISONE SODIUM SUCCINATE) [Concomitant]
  6. PHENYLEPHRINE (PHENYLEPHRINE) [Concomitant]
  7. SODIUM LACTATE (SODIUM LACTATE) [Concomitant]

REACTIONS (4)
  - Hypotension [None]
  - Rash [None]
  - Vomiting [None]
  - Angioedema [None]
